FAERS Safety Report 24844999 (Version 2)
Quarter: 2025Q1

REPORT INFORMATION
  Report Type: Spontaneous
  Country: CA (occurrence: CA)
  Receive Date: 20250115
  Receipt Date: 20250304
  Transmission Date: 20250409
  Serious: Yes (Other)
  Sender: PFIZER
  Company Number: CA-PFIZER INC-202400226734

PATIENT
  Age: 67 Year
  Sex: Male

DRUGS (1)
  1. VYNDAMAX [Suspect]
     Active Substance: TAFAMIDIS
     Indication: Cardiac amyloidosis
     Dosage: 61 MG, 1X/DAY
     Route: 048
     Dates: start: 20240712

REACTIONS (8)
  - Cardiac failure chronic [Unknown]
  - Atrial fibrillation [Unknown]
  - Oedema peripheral [Not Recovered/Not Resolved]
  - QRS axis abnormal [Unknown]
  - Dyspnoea paroxysmal nocturnal [Unknown]
  - Dyspnoea exertional [Unknown]
  - Wrong technique in product usage process [Unknown]
  - Product dose omission issue [Unknown]

NARRATIVE: CASE EVENT DATE: 20241129
